FAERS Safety Report 6876317-8 (Version None)
Quarter: 2010Q3

REPORT INFORMATION
  Report Type: 
  Country: None (occurrence: None)
  Receive Date: 20100723
  Receipt Date: 20100708
  Transmission Date: 20110219
  Serious: Yes (Hospitalization)
  Sender: FDA-Public Use
  Company Number: A-CH2010-37951

PATIENT
  Age: 44 Year
  Sex: Female

DRUGS (12)
  1. TRACLEER [Suspect]
     Indication: PULMONARY ARTERIAL HYPERTENSION
     Dosage: 62.5 MG, BID, ORAL
     Route: 048
     Dates: start: 20090331, end: 20100303
  2. REVATIO [Concomitant]
  3. FUROSEMIDE [Concomitant]
  4. RABEPRAZOLE SODIUM [Concomitant]
  5. MIMIRIN (DESMOPRESSIN ACETATE) [Concomitant]
  6. EFFEXOR [Concomitant]
  7. ATARAX (ALPRAZOLAM) [Concomitant]
  8. POTASSIUM CHLORIDE [Concomitant]
  9. TARDYFERON (FERROUS SULFATE) [Concomitant]
  10. MAGNE-B6 (MAGNESIUM LACTATE, PYRIDOXINE HYDROCHLORIDE) [Concomitant]
  11. PREVISCAN (FLUINDIONE) [Concomitant]
  12. OXYGEN (OXYGEN) [Concomitant]

REACTIONS (3)
  - AUTOIMMUNE HEPATITIS [None]
  - CHOLESTASIS [None]
  - CYTOLYTIC HEPATITIS [None]
